FAERS Safety Report 24220491 (Version 2)
Quarter: 2024Q3

REPORT INFORMATION
  Report Type: Spontaneous
  Country: US (occurrence: US)
  Receive Date: 20240818
  Receipt Date: 20240820
  Transmission Date: 20241017
  Serious: Yes (Other)
  Sender: AUROBINDO
  Company Number: US-AUROBINDO-AUR-APL-2024-039917

PATIENT
  Age: 39 Year
  Sex: Female

DRUGS (10)
  1. BROMOCRIPTINE MESYLATE [Suspect]
     Active Substance: BROMOCRIPTINE MESYLATE
     Indication: Hypercalcaemia
     Dosage: 2.5 MILLIGRAM, DAILY
     Route: 065
  2. BROMOCRIPTINE MESYLATE [Suspect]
     Active Substance: BROMOCRIPTINE MESYLATE
     Dosage: 5 MILLIGRAM, DAILY
     Route: 065
  3. ABACAVIR SULFATE\DOLUTEGRAVIR SODIUM\LAMIVUDINE [Suspect]
     Active Substance: ABACAVIR SULFATE\DOLUTEGRAVIR SODIUM\LAMIVUDINE
     Indication: Product used for unknown indication
     Dosage: UNK
     Route: 065
  4. ESCITALOPRAM [Suspect]
     Active Substance: ESCITALOPRAM OXALATE
     Indication: Product used for unknown indication
     Dosage: UNK
     Route: 065
  5. LIDOCAINE [Suspect]
     Active Substance: LIDOCAINE
     Indication: Product used for unknown indication
     Dosage: 1 PERCENT
     Route: 065
  6. CHOLECALCIFEROL [Suspect]
     Active Substance: CHOLECALCIFEROL
     Indication: Product used for unknown indication
     Dosage: 400 UNITS
     Route: 065
  7. CALCIUM SULFATE [Suspect]
     Active Substance: CALCIUM SULFATE
     Indication: Product used for unknown indication
     Dosage: 200 MILLIGRAM
     Route: 065
  8. SODIUM CHLORIDE [Suspect]
     Active Substance: SODIUM CHLORIDE
     Indication: Hyperglycaemia
     Dosage: UNK
     Route: 042
  9. CALCITONIN [Suspect]
     Active Substance: CALCITONIN
     Indication: Hyperglycaemia
     Dosage: 4 UNITS/KG X 4 DOSES
     Route: 065
  10. EPINEPHRINE [Suspect]
     Active Substance: EPINEPHRINE
     Indication: Product used for unknown indication
     Dosage: UNK, EPINEPHRINE DILUTED IN 1L OF RINGER^S LACTATE [LACTATED RINGERS]
     Route: 065

REACTIONS (2)
  - Drug ineffective [Unknown]
  - Exposure during pregnancy [Unknown]
